FAERS Safety Report 9462010 (Version 1)
Quarter: 2013Q3

REPORT INFORMATION
  Report Type: Spontaneous
  Country: US (occurrence: None)
  Receive Date: 20130815
  Receipt Date: 20130815
  Transmission Date: 20140515
  Serious: Yes (Hospitalization)
  Sender: FDA-Public Use
  Company Number: None

PATIENT
  Age: 56 Year
  Sex: Female
  Weight: 49.6 kg

DRUGS (20)
  1. AZITHROMYCIN [Concomitant]
  2. ALPRAZOLAM [Concomitant]
  3. FENOFIBRATE [Concomitant]
  4. LORAZEPAM [Concomitant]
  5. ONDANSETRON [Concomitant]
  6. FLUCONAZOLE [Concomitant]
  7. ACYCLOVIR [Concomitant]
  8. ALLERGY RELIEF WITH DIPHENHYDRAMINE [Concomitant]
  9. ADVAIR DISKUS [Concomitant]
  10. ASPIRIN [Concomitant]
  11. DICYCLOMINE [Concomitant]
  12. VALACYCLOVIR [Concomitant]
  13. KEFTAB [Concomitant]
  14. CAMPATH [Suspect]
     Indication: LEUKAEMIA
     Dosage: RECENT
  15. VIT D [Concomitant]
  16. NORCO [Concomitant]
  17. PREDNISONE [Concomitant]
  18. BUSPIRONE [Concomitant]
  19. HYDROXYZINE [Concomitant]
  20. ACIPHEX [Concomitant]

REACTIONS (6)
  - Haemoptysis [None]
  - Acute respiratory failure [None]
  - Toxicity to various agents [None]
  - Hyperglycaemia [None]
  - Thrombosis [None]
  - Respiratory tract haemorrhage [None]
